FAERS Safety Report 4657184-X (Version None)
Quarter: 2005Q2

REPORT INFORMATION
  Report Type: 
  Country: None (occurrence: None)
  Receive Date: 20050506
  Receipt Date: 20050427
  Transmission Date: 20051028
  Serious: Yes (Hospitalization)
  Sender: FDA-Public Use
  Company Number: 2005066833

PATIENT
  Age: 67 Year
  Sex: Female
  Weight: 76.2043 kg

DRUGS (3)
  1. BEXTRA [Suspect]
     Indication: JOINT INJURY
     Dosage: (20 MG,) ORAL
     Route: 048
     Dates: start: 20030101, end: 20051001
  2. CONJUGATED ESTROGENS [Suspect]
     Indication: DRY SKIN
     Dosage: ORAL
     Route: 048
  3. VITAMINS (VITAMINS) [Concomitant]

REACTIONS (12)
  - ARTHRALGIA [None]
  - CEREBROVASCULAR ACCIDENT [None]
  - CONDITION AGGRAVATED [None]
  - DEHYDRATION [None]
  - DIFFICULTY IN WALKING [None]
  - DRUG WITHDRAWAL SYNDROME [None]
  - DRY SKIN [None]
  - DYSSTASIA [None]
  - FLUID RETENTION [None]
  - INSOMNIA [None]
  - MIGRAINE [None]
  - SINUS DISORDER [None]
